FAERS Safety Report 8490571-0 (Version None)
Quarter: 2012Q3

REPORT INFORMATION
  Report Type: 
  Country: None (occurrence: None)
  Receive Date: 20120705
  Receipt Date: 20120627
  Transmission Date: 20120928
  Serious: Yes (Hospitalization)
  Sender: FDA-Public Use
  Company Number: US-ABBOTT-12P-163-0951069-00

PATIENT
  Sex: Male
  Weight: 88.53 kg

DRUGS (6)
  1. TOPAMAX [Concomitant]
     Indication: PRODUCT USED FOR UNKNOWN INDICATION
  2. AMLODIPINE [Concomitant]
     Indication: HYPERTENSION
  3. POTASSIUM [Concomitant]
     Indication: PRODUCT USED FOR UNKNOWN INDICATION
     Dates: start: 20120301
  4. PRAVASTATIN [Concomitant]
     Indication: BLOOD CHOLESTEROL INCREASED
  5. HUMIRA [Suspect]
     Indication: COLITIS ULCERATIVE
     Route: 058
     Dates: start: 20120301
  6. LISINOPRIL [Concomitant]
     Indication: HYPERTENSION

REACTIONS (5)
  - ARTHRALGIA [None]
  - BLOOD PRESSURE DECREASED [None]
  - FEELING COLD [None]
  - BLOOD POTASSIUM DECREASED [None]
  - CHEST PAIN [None]
